FAERS Safety Report 22898449 (Version 4)
Quarter: 2025Q2

REPORT INFORMATION
  Report Type: Spontaneous
  Country: PT (occurrence: PT)
  Receive Date: 20230904
  Receipt Date: 20250531
  Transmission Date: 20250716
  Serious: Yes (Hospitalization, Other)
  Sender: AUROBINDO
  Company Number: PT-FreseniusKabi-FK202313176

PATIENT
  Age: 47 Year
  Sex: Female

DRUGS (19)
  1. OXALIPLATIN [Suspect]
     Active Substance: OXALIPLATIN
     Indication: Disease progression
     Route: 065
  2. OXALIPLATIN [Suspect]
     Active Substance: OXALIPLATIN
     Indication: Small intestine carcinoma
     Route: 065
     Dates: start: 202112
  3. FLUOROURACIL [Suspect]
     Active Substance: FLUOROURACIL
     Indication: Disease progression
     Route: 042
  4. FLUOROURACIL [Suspect]
     Active Substance: FLUOROURACIL
     Indication: Small intestine carcinoma
     Route: 042
     Dates: start: 202112
  5. CISPLATIN [Suspect]
     Active Substance: CISPLATIN
     Indication: Small intestine carcinoma
     Route: 042
  6. CISPLATIN [Suspect]
     Active Substance: CISPLATIN
     Indication: Metastases to liver
  7. LEUCOVORIN [Suspect]
     Active Substance: LEUCOVORIN\LEUCOVORIN CALCIUM
     Indication: Disease progression
     Route: 065
  8. LEUCOVORIN [Suspect]
     Active Substance: LEUCOVORIN\LEUCOVORIN CALCIUM
     Route: 065
     Dates: start: 202112
  9. KETAMINE [Suspect]
     Active Substance: KETAMINE
     Indication: Cancer pain
     Dosage: 75 MILLIGRAM, ONCE A DAY
     Route: 065
  10. ONDANSETRON [Concomitant]
     Active Substance: ONDANSETRON
     Indication: Product used for unknown indication
     Route: 065
  11. LEUCOVORIN CALCIUM [Concomitant]
     Active Substance: LEUCOVORIN CALCIUM
     Indication: Product used for unknown indication
     Route: 065
  12. DEXAMETHASONE [Concomitant]
     Active Substance: DEXAMETHASONE
     Indication: Product used for unknown indication
     Route: 065
  13. Escopolamina butilbromuro [Concomitant]
     Indication: Product used for unknown indication
     Route: 065
  14. HALOPERIDOL [Concomitant]
     Active Substance: HALOPERIDOL
     Indication: Product used for unknown indication
     Route: 065
  15. PREGABALIN [Concomitant]
     Active Substance: PREGABALIN
     Indication: Product used for unknown indication
     Route: 065
  16. AMITRIPTYLINE HYDROCHLORIDE [Concomitant]
     Active Substance: AMITRIPTYLINE HYDROCHLORIDE
     Indication: Product used for unknown indication
     Route: 065
  17. GEMCITABINE [Concomitant]
     Active Substance: GEMCITABINE
     Indication: Product used for unknown indication
     Route: 065
  18. MIDAZOLAM [Concomitant]
     Active Substance: MIDAZOLAM
     Indication: Product used for unknown indication
     Route: 065
  19. FENTANYL [Concomitant]
     Active Substance: FENTANYL
     Indication: Product used for unknown indication
     Route: 065

REACTIONS (7)
  - Thrombocytopenia [Unknown]
  - Type II hypersensitivity [Unknown]
  - Pyrexia [Unknown]
  - Upper gastrointestinal haemorrhage [Unknown]
  - Drug ineffective [Unknown]
  - Hypersensitivity [Unknown]
  - Off label use [Unknown]
